FAERS Safety Report 7789559-4 (Version None)
Quarter: 2011Q3

REPORT INFORMATION
  Report Type: 
  Country: None (occurrence: None)
  Receive Date: 20110930
  Receipt Date: 20110926
  Transmission Date: 20111222
  Serious: Yes (Hospitalization, Other)
  Sender: FDA-Public Use
  Company Number: US-AMGEN-USASP2011049539

PATIENT
  Age: 49 Year
  Sex: Female

DRUGS (1)
  1. ENBREL [Suspect]
     Indication: RHEUMATOID ARTHRITIS
     Dates: start: 19990201, end: 20110907

REACTIONS (8)
  - VOMITING [None]
  - NAUSEA [None]
  - IRITIS [None]
  - ABDOMINAL PAIN [None]
  - SCAR [None]
  - RHEUMATOID ARTHRITIS [None]
  - HERNIA OBSTRUCTIVE [None]
  - INFREQUENT BOWEL MOVEMENTS [None]
